FAERS Safety Report 4387363-0 (Version None)
Quarter: 2004Q2

REPORT INFORMATION
  Report Type: 
  Country: None (occurrence: None)
  Receive Date: 20040630
  Receipt Date: 20040415
  Transmission Date: 20050107
  Serious: No
  Sender: FDA-Public Use
  Company Number: US-GLAXOSMITHKLINE-A0507260A

PATIENT
  Sex: Female

DRUGS (8)
  1. ADVAIR HFA [Suspect]
     Indication: ASTHMA
     Dosage: 1PUFF TWICE PER DAY
     Route: 055
     Dates: start: 20030901
  2. METFORMIN [Concomitant]
  3. INSULIN [Concomitant]
  4. ZOLOFT [Concomitant]
  5. GLYBURIDE [Concomitant]
  6. FAMOTIDINE [Concomitant]
  7. ENALAPRIL MALEATE [Concomitant]
  8. LEVOCABASTINE [Concomitant]

REACTIONS (1)
  - DRUG INEFFECTIVE [None]
